FAERS Safety Report 9921372 (Version 1)
Quarter: 2014Q1

REPORT INFORMATION
  Report Type: Report from Study
  Country: US (occurrence: US)
  Receive Date: 20140225
  Receipt Date: 20140225
  Transmission Date: 20141002
  Serious: Yes (Other)
  Sender: FDA-Public Use
  Company Number: US-JNJFOC-20140211616

PATIENT
  Age: 59 Year
  Sex: Female
  Weight: 70.76 kg

DRUGS (9)
  1. SIMPONI [Suspect]
     Indication: RHEUMATOID ARTHRITIS
     Route: 058
  2. SUMATRIPTAN [Concomitant]
     Indication: MIGRAINE
     Route: 048
  3. PREDNISONE [Concomitant]
     Indication: RHEUMATOID ARTHRITIS
     Route: 048
     Dates: end: 2013
  4. PREDNISONE [Concomitant]
     Indication: RHEUMATOID ARTHRITIS
     Route: 048
     Dates: start: 2013
  5. METHOTREXATE [Concomitant]
     Indication: RHEUMATOID ARTHRITIS
     Route: 048
  6. DEPAKOTE [Concomitant]
     Indication: MIGRAINE
     Route: 048
  7. RELPAX [Concomitant]
     Indication: MIGRAINE
     Route: 048
     Dates: end: 201402
  8. LYRICA [Concomitant]
     Indication: BACK PAIN
     Route: 048
     Dates: start: 201402
  9. ZYRTEC [Concomitant]
     Indication: MULTIPLE ALLERGIES
     Route: 048

REACTIONS (4)
  - Rheumatoid arthritis [Not Recovered/Not Resolved]
  - Influenza [Recovered/Resolved]
  - Bronchitis [Recovered/Resolved]
  - Glaucoma [Recovering/Resolving]
